FAERS Safety Report 5872420-X (Version None)
Quarter: 2008Q3

REPORT INFORMATION
  Report Type: 
  Country: None (occurrence: None)
  Receive Date: 20080905
  Receipt Date: 20080827
  Transmission Date: 20090109
  Serious: Yes (Hospitalization, Other)
  Sender: FDA-Public Use
  Company Number: PHHY2008GB19786

PATIENT
  Age: 51 Year
  Sex: Female

DRUGS (4)
  1. DICLOFENAC [Suspect]
     Dosage: UNK
  2. DESOGESTREL [Suspect]
     Dosage: UNK
  3. ENBREL [Concomitant]
     Indication: RHEUMATOID ARTHRITIS
     Dosage: 25 MG, QW2
     Route: 058
     Dates: start: 20050401, end: 20080610
  4. METHOTREXATE [Concomitant]
     Indication: RHEUMATOID ARTHRITIS
     Dosage: UNK

REACTIONS (4)
  - CEREBRAL HAEMORRHAGE [None]
  - CEREBRAL VENOUS THROMBOSIS [None]
  - HEADACHE [None]
  - PARAESTHESIA [None]
